FAERS Safety Report 14234852 (Version 1)
Quarter: 2017Q4

REPORT INFORMATION
  Report Type: Spontaneous
  Country: FR (occurrence: FR)
  Receive Date: 20171129
  Receipt Date: 20171129
  Transmission Date: 20180321
  Serious: Yes (Hospitalization)
  Sender: FDA-Public Use
  Company Number: FR-PACIRA PHARMACEUTICALS, INC.-2017DEPFR00754

PATIENT

DRUGS (3)
  1. DABRAFENIB [Concomitant]
     Active Substance: DABRAFENIB
     Indication: BRAF V600E MUTATION POSITIVE
  2. DEPOCYT [Suspect]
     Active Substance: CYTARABINE
     Indication: BRAF V600E MUTATION POSITIVE
     Dosage: 50 MG, SINGLE
     Route: 037
  3. PREDNISOLONE. [Concomitant]
     Active Substance: PREDNISOLONE
     Indication: NEUROLOGICAL SYMPTOM
     Dosage: 80 MG, DAILY
     Route: 050

REACTIONS (1)
  - Meningitis chemical [Recovered/Resolved]
